FAERS Safety Report 21363547 (Version 1)
Quarter: 2022Q3

REPORT INFORMATION
  Report Type: Spontaneous
  Country: US (occurrence: US)
  Receive Date: 20220922
  Receipt Date: 20220922
  Transmission Date: 20221027
  Serious: Yes (Death)
  Sender: FDA-Public Use
  Company Number: US-MYLANLABS-2022M1095009

PATIENT
  Age: 64 Year
  Sex: Male

DRUGS (6)
  1. DEXAMETHASONE [Suspect]
     Active Substance: DEXAMETHASONE
     Indication: Mantle cell lymphoma
     Dosage: UNK
     Route: 065
  2. VENETOCLAX [Suspect]
     Active Substance: VENETOCLAX
     Indication: Mantle cell lymphoma
     Dosage: UNK
     Route: 065
  3. OBINUTUZUMAB [Suspect]
     Active Substance: OBINUTUZUMAB
     Indication: Mantle cell lymphoma
     Dosage: UNK
     Route: 065
  4. CYCLOPHOSPHAMIDE [Suspect]
     Active Substance: CYCLOPHOSPHAMIDE
     Indication: Mantle cell lymphoma
     Dosage: UNK
     Route: 065
  5. CAPTOPRIL [Concomitant]
     Active Substance: CAPTOPRIL
     Indication: Prophylaxis
     Dosage: 25 MILLIGRAM, QD
     Route: 065
  6. SALINE [Concomitant]
     Active Substance: SODIUM CHLORIDE
     Indication: Hypophagia
     Dosage: 75 MILLILITER, QH
     Route: 042

REACTIONS (2)
  - Drug ineffective [Fatal]
  - Disease progression [Fatal]
